FAERS Safety Report 23654913 (Version 1)
Quarter: 2024Q1

REPORT INFORMATION
  Report Type: Spontaneous
  Country: FR (occurrence: FR)
  Receive Date: 20240320
  Receipt Date: 20240320
  Transmission Date: 20240409
  Serious: Yes (Life-Threatening)
  Sender: FDA-Public Use
  Company Number: None

PATIENT
  Age: 50 Year
  Sex: Male

DRUGS (2)
  1. DIAZEPAM [Suspect]
     Active Substance: DIAZEPAM
     Indication: Toxicity to various agents
     Route: 048
     Dates: start: 20240126
  2. PAROXETINE [Suspect]
     Active Substance: PAROXETINE
     Indication: Toxicity to various agents
     Dosage: PAROXETINE BASE
     Route: 048
     Dates: start: 20240126

REACTIONS (4)
  - Respiratory failure [Recovered/Resolved]
  - Nervous system disorder [Recovered/Resolved]
  - Hypothermia [Recovered/Resolved]
  - Toxicity to various agents [Recovered/Resolved]

NARRATIVE: CASE EVENT DATE: 20240126
